FAERS Safety Report 8164575-1 (Version None)
Quarter: 2012Q1

REPORT INFORMATION
  Report Type: 
  Country: None (occurrence: None)
  Receive Date: 20120226
  Receipt Date: 20120215
  Transmission Date: 20120608
  Serious: Yes (Hospitalization, Other)
  Sender: FDA-Public Use
  Company Number: FR-BRISTOL-MYERS SQUIBB COMPANY-16405094

PATIENT
  Age: 73 Year
  Sex: Male

DRUGS (10)
  1. RAMIPRIL [Concomitant]
  2. POTASSIUM CHLORIDE [Concomitant]
  3. COUMADIN [Suspect]
     Indication: ATRIAL FIBRILLATION
     Dosage: SCORED TABLET,STARTED BEFORE 2010
     Route: 048
     Dates: end: 20100731
  4. ALLOPURINOL [Concomitant]
  5. SPIRIVA [Concomitant]
  6. AMIODARONE HCL [Concomitant]
  7. FUROSEMIDE [Concomitant]
  8. NICOBION [Concomitant]
  9. BISOPROLOL FUMARATE [Concomitant]
  10. PANTOPRAZOLE SODIUM [Concomitant]

REACTIONS (3)
  - THROMBOCYTOPENIA [None]
  - EPISTAXIS [None]
  - INTERNATIONAL NORMALISED RATIO INCREASED [None]
